FAERS Safety Report 15744942 (Version 2)
Quarter: 2018Q4

REPORT INFORMATION
  Report Type: Spontaneous
  Country: GB (occurrence: GB)
  Receive Date: 20181220
  Receipt Date: 20181220
  Transmission Date: 20190205
  Serious: Yes (Other)
  Sender: FDA-Public Use
  Company Number: GB-SA-2018SA387646

PATIENT
  Age: 54 Year
  Sex: Female

DRUGS (1)
  1. ALEMTUZUMAB [Suspect]
     Active Substance: ALEMTUZUMAB
     Indication: MULTIPLE SCLEROSIS
     Dosage: UNK
     Route: 042
     Dates: start: 1995, end: 1995

REACTIONS (2)
  - Basedow^s disease [Unknown]
  - Endocrine ophthalmopathy [Unknown]

NARRATIVE: CASE EVENT DATE: 1997
